FAERS Safety Report 4340485-2 (Version None)
Quarter: 2004Q2

REPORT INFORMATION
  Report Type: 
  Country: None (occurrence: None)
  Receive Date: 20040414
  Receipt Date: 20040406
  Transmission Date: 20050107
  Serious: Yes (Other)
  Sender: FDA-Public Use
  Company Number: 2004208086GB

PATIENT
  Age: 67 Year
  Sex: Male
  Weight: 75 kg

DRUGS (5)
  1. SULFASALAZINE [Suspect]
     Indication: COLITIS ULCERATIVE
     Dosage: 1 G, BID
     Dates: start: 19701201, end: 20040101
  2. SIMVASTATIN [Concomitant]
  3. ASPIRIN [Concomitant]
  4. AMLODIPINE [Concomitant]
  5. FERROUS SULFATE TAB [Concomitant]

REACTIONS (3)
  - LUNG INFILTRATION [None]
  - NEPHROTIC SYNDROME [None]
  - PLEURAL DISORDER [None]
